FAERS Safety Report 4827862-8 (Version None)
Quarter: 2005Q4

REPORT INFORMATION
  Report Type: 
  Country: None (occurrence: None)
  Receive Date: 20051114
  Receipt Date: 20051114
  Transmission Date: 20060501
  Serious: Yes (Hospitalization)
  Sender: FDA-Public Use
  Company Number: None

PATIENT
  Age: 64 Year
  Sex: Male

DRUGS (2)
  1. VERAPAMIL [Suspect]
     Indication: HYPERTENSION
     Dosage: 240 MG   DAILY   PO
     Route: 048
     Dates: start: 20051001, end: 20051021
  2. BETAXOLOL HCL [Suspect]
     Indication: GLAUCOMA
     Dosage: DAILY   OPHTHALMIC
     Route: 047
     Dates: start: 20051001, end: 20051021

REACTIONS (2)
  - BRADYCARDIA [None]
  - DISORIENTATION [None]
